FAERS Safety Report 6349682-8 (Version None)
Quarter: 2009Q3

REPORT INFORMATION
  Report Type: 
  Country: None (occurrence: None)
  Receive Date: 20090911
  Receipt Date: 20090901
  Transmission Date: 20100115
  Serious: Yes (Other)
  Sender: FDA-Public Use
  Company Number: US-ELI_LILLY_AND_COMPANY-US200909001263

PATIENT
  Sex: Male

DRUGS (2)
  1. CIALIS [Suspect]
     Indication: ERECTILE DYSFUNCTION
     Dosage: 2.5 MG, DAILY (1/D)
     Route: 065
  2. CIALIS [Suspect]
     Dosage: 5 MG, DAILY (1/D)
     Route: 065
     Dates: end: 20090611

REACTIONS (1)
  - BLOOD ALKALINE PHOSPHATASE INCREASED [None]
